FAERS Safety Report 9293738 (Version 2)
Quarter: 2013Q2

REPORT INFORMATION
  Report Type: Spontaneous
  Country: US (occurrence: US)
  Receive Date: 20130516
  Receipt Date: 20130607
  Transmission Date: 20140414
  Serious: No
  Sender: FDA-Public Use
  Company Number: US-009507513-1305USA005190

PATIENT
  Age: 30 Year
  Sex: Female

DRUGS (2)
  1. SAPHRIS [Suspect]
     Indication: BIPOLAR I DISORDER
     Dosage: 5 MG, QD
     Route: 060
     Dates: start: 201302
  2. CELEXA [Concomitant]

REACTIONS (4)
  - Extrapyramidal disorder [Recovered/Resolved]
  - Trismus [Recovered/Resolved]
  - Rett^s disorder [Recovering/Resolving]
  - Akathisia [Recovering/Resolving]
